FAERS Safety Report 26053440 (Version 1)
Quarter: 2025Q4

REPORT INFORMATION
  Report Type: Spontaneous
  Country: GB (occurrence: GB)
  Receive Date: 20251117
  Receipt Date: 20251117
  Transmission Date: 20260118
  Serious: Yes (Other)
  Sender: MYLAN
  Company Number: None

PATIENT
  Age: 83 Year

DRUGS (52)
  1. LATANOPROST [Suspect]
     Active Substance: LATANOPROST
     Indication: Product used for unknown indication
     Dosage: 1 DOSAGE FORM, PM (LATANOPROST 50MICROGRAMS/ML EYE DROPS, ONE DROP TO BE USED AT NIGHT IN BOTH EYES,5 ML)
  2. LATANOPROST [Suspect]
     Active Substance: LATANOPROST
     Dosage: 1 DOSAGE FORM, PM (LATANOPROST 50MICROGRAMS/ML EYE DROPS, ONE DROP TO BE USED AT NIGHT IN BOTH EYES,5 ML)
     Route: 047
  3. LATANOPROST [Suspect]
     Active Substance: LATANOPROST
     Dosage: 1 DOSAGE FORM, PM (LATANOPROST 50MICROGRAMS/ML EYE DROPS, ONE DROP TO BE USED AT NIGHT IN BOTH EYES,5 ML)
     Route: 047
  4. LATANOPROST [Suspect]
     Active Substance: LATANOPROST
     Dosage: 1 DOSAGE FORM, PM (LATANOPROST 50MICROGRAMS/ML EYE DROPS, ONE DROP TO BE USED AT NIGHT IN BOTH EYES,5 ML)
  5. AZARGA [Suspect]
     Active Substance: BRINZOLAMIDE\TIMOLOL MALEATE
     Indication: Product used for unknown indication
     Dosage: 1 DOSAGE FORM, BID (AZARGA 10MG/ML / 5MG/ML EYE DROPS ONE DROP TO BE USED TO THE RIGHT AND LEFT EYES TWICE A DAY,10 ML)
  6. AZARGA [Suspect]
     Active Substance: BRINZOLAMIDE\TIMOLOL MALEATE
     Dosage: 1 DOSAGE FORM, BID (AZARGA 10MG/ML / 5MG/ML EYE DROPS ONE DROP TO BE USED TO THE RIGHT AND LEFT EYES TWICE A DAY,10 ML)
     Route: 047
  7. AZARGA [Suspect]
     Active Substance: BRINZOLAMIDE\TIMOLOL MALEATE
     Dosage: 1 DOSAGE FORM, BID (AZARGA 10MG/ML / 5MG/ML EYE DROPS ONE DROP TO BE USED TO THE RIGHT AND LEFT EYES TWICE A DAY,10 ML)
     Route: 047
  8. AZARGA [Suspect]
     Active Substance: BRINZOLAMIDE\TIMOLOL MALEATE
     Dosage: 1 DOSAGE FORM, BID (AZARGA 10MG/ML / 5MG/ML EYE DROPS ONE DROP TO BE USED TO THE RIGHT AND LEFT EYES TWICE A DAY,10 ML)
  9. Comirnaty jn.1 [Concomitant]
     Dosage: UNK (COMIRNATY JN.1 COVID-19 MRNA VACCINE 30MICROGRAMS/0.3ML DOSE DISPERSION FORINJECTION MULTIDOSE VIALS (PFIZER LTD), 0.3 ML INTRAMUSCULAR ROUTE (QUALIFIER VALUE),0.3 ML)
  10. Comirnaty jn.1 [Concomitant]
     Dosage: UNK (COMIRNATY JN.1 COVID-19 MRNA VACCINE 30MICROGRAMS/0.3ML DOSE DISPERSION FORINJECTION MULTIDOSE VIALS (PFIZER LTD), 0.3 ML INTRAMUSCULAR ROUTE (QUALIFIER VALUE),0.3 ML)
     Route: 030
  11. Comirnaty jn.1 [Concomitant]
     Dosage: UNK (COMIRNATY JN.1 COVID-19 MRNA VACCINE 30MICROGRAMS/0.3ML DOSE DISPERSION FORINJECTION MULTIDOSE VIALS (PFIZER LTD), 0.3 ML INTRAMUSCULAR ROUTE (QUALIFIER VALUE),0.3 ML)
     Route: 030
  12. Comirnaty jn.1 [Concomitant]
     Dosage: UNK (COMIRNATY JN.1 COVID-19 MRNA VACCINE 30MICROGRAMS/0.3ML DOSE DISPERSION FORINJECTION MULTIDOSE VIALS (PFIZER LTD), 0.3 ML INTRAMUSCULAR ROUTE (QUALIFIER VALUE),0.3 ML)
  13. LACTULOSE [Concomitant]
     Active Substance: LACTULOSE
     Dosage: 15 MILLILITER, PRN (15ML TWICE DAILY WHEN NEEDED,500 ML)
  14. LACTULOSE [Concomitant]
     Active Substance: LACTULOSE
     Dosage: 15 MILLILITER, PRN (15ML TWICE DAILY WHEN NEEDED,500 ML)
     Route: 048
  15. LACTULOSE [Concomitant]
     Active Substance: LACTULOSE
     Dosage: 15 MILLILITER, PRN (15ML TWICE DAILY WHEN NEEDED,500 ML)
     Route: 048
  16. LACTULOSE [Concomitant]
     Active Substance: LACTULOSE
     Dosage: 15 MILLILITER, PRN (15ML TWICE DAILY WHEN NEEDED,500 ML)
  17. IBANDRONIC ACID [Concomitant]
     Active Substance: IBANDRONIC ACID
     Dosage: 1 DOSAGE FORM, MONTHLY (IBANDRONIC ACID 150MG TABLETS, TAKE ONE TABLET ONCE A MONTH)
  18. IBANDRONIC ACID [Concomitant]
     Active Substance: IBANDRONIC ACID
     Dosage: 1 DOSAGE FORM, MONTHLY (IBANDRONIC ACID 150MG TABLETS, TAKE ONE TABLET ONCE A MONTH)
     Route: 065
  19. IBANDRONIC ACID [Concomitant]
     Active Substance: IBANDRONIC ACID
     Dosage: 1 DOSAGE FORM, MONTHLY (IBANDRONIC ACID 150MG TABLETS, TAKE ONE TABLET ONCE A MONTH)
     Route: 065
  20. IBANDRONIC ACID [Concomitant]
     Active Substance: IBANDRONIC ACID
     Dosage: 1 DOSAGE FORM, MONTHLY (IBANDRONIC ACID 150MG TABLETS, TAKE ONE TABLET ONCE A MONTH)
  21. BECLOMETHASONE\FORMOTEROL [Concomitant]
     Active Substance: BECLOMETHASONE\FORMOTEROL
     Dosage: 2 DOSAGE FORM, BID (FOSTAIR 100MICROGRAMS/DOSE / 6MICROGRAMS/DOSE INHALER TWO PUFFS TO BE INHALED TWICE A DAY,2 X 120 DOSE)
  22. BECLOMETHASONE\FORMOTEROL [Concomitant]
     Active Substance: BECLOMETHASONE\FORMOTEROL
     Dosage: 2 DOSAGE FORM, BID (FOSTAIR 100MICROGRAMS/DOSE / 6MICROGRAMS/DOSE INHALER TWO PUFFS TO BE INHALED TWICE A DAY,2 X 120 DOSE)
     Route: 055
  23. BECLOMETHASONE\FORMOTEROL [Concomitant]
     Active Substance: BECLOMETHASONE\FORMOTEROL
     Dosage: 2 DOSAGE FORM, BID (FOSTAIR 100MICROGRAMS/DOSE / 6MICROGRAMS/DOSE INHALER TWO PUFFS TO BE INHALED TWICE A DAY,2 X 120 DOSE)
     Route: 055
  24. BECLOMETHASONE\FORMOTEROL [Concomitant]
     Active Substance: BECLOMETHASONE\FORMOTEROL
     Dosage: 2 DOSAGE FORM, BID (FOSTAIR 100MICROGRAMS/DOSE / 6MICROGRAMS/DOSE INHALER TWO PUFFS TO BE INHALED TWICE A DAY,2 X 120 DOSE)
  25. ENSURE [Concomitant]
     Active Substance: AMINO ACIDS\DEXTROSE\ELECTROLYTES NOS\SOYBEAN OIL\VITAMINS
     Dosage: UNK UNK, QD (ENSURE PLUS JUCE LIQUID ONE A DAY ,24 X 220 ML)
  26. ENSURE [Concomitant]
     Active Substance: AMINO ACIDS\DEXTROSE\ELECTROLYTES NOS\SOYBEAN OIL\VITAMINS
     Dosage: UNK UNK, QD (ENSURE PLUS JUCE LIQUID ONE A DAY ,24 X 220 ML)
     Route: 065
  27. ENSURE [Concomitant]
     Active Substance: AMINO ACIDS\DEXTROSE\ELECTROLYTES NOS\SOYBEAN OIL\VITAMINS
     Dosage: UNK UNK, QD (ENSURE PLUS JUCE LIQUID ONE A DAY ,24 X 220 ML)
     Route: 065
  28. ENSURE [Concomitant]
     Active Substance: AMINO ACIDS\DEXTROSE\ELECTROLYTES NOS\SOYBEAN OIL\VITAMINS
     Dosage: UNK UNK, QD (ENSURE PLUS JUCE LIQUID ONE A DAY ,24 X 220 ML)
  29. Comirnaty KP.2 [Concomitant]
     Dosage: UNK (COMIRNATY KP.2 ADULTS AND ADOLESCENTS FROM 12 YEARS COVID-19 MRNA VACCINE 30MICROGRAMS/0.3ML DOSE DISPERSION FOR INJECTION MULTIDOSE VIALS (PFIZER LTD), 0.3 ML INTRAMUSCULAR,0.3 ML)
  30. Comirnaty KP.2 [Concomitant]
     Dosage: UNK (COMIRNATY KP.2 ADULTS AND ADOLESCENTS FROM 12 YEARS COVID-19 MRNA VACCINE 30MICROGRAMS/0.3ML DOSE DISPERSION FOR INJECTION MULTIDOSE VIALS (PFIZER LTD), 0.3 ML INTRAMUSCULAR,0.3 ML)
     Route: 030
  31. Comirnaty KP.2 [Concomitant]
     Dosage: UNK (COMIRNATY KP.2 ADULTS AND ADOLESCENTS FROM 12 YEARS COVID-19 MRNA VACCINE 30MICROGRAMS/0.3ML DOSE DISPERSION FOR INJECTION MULTIDOSE VIALS (PFIZER LTD), 0.3 ML INTRAMUSCULAR,0.3 ML)
     Route: 030
  32. Comirnaty KP.2 [Concomitant]
     Dosage: UNK (COMIRNATY KP.2 ADULTS AND ADOLESCENTS FROM 12 YEARS COVID-19 MRNA VACCINE 30MICROGRAMS/0.3ML DOSE DISPERSION FOR INJECTION MULTIDOSE VIALS (PFIZER LTD), 0.3 ML INTRAMUSCULAR,0.3 ML)
  33. PILOCARPINE [Concomitant]
     Active Substance: PILOCARPINE
     Dosage: 1 DOSAGE FORM, TID (PILOCARPINE HYDROCHLORIDE 2% EYE DROPS, ONE DROP TO BE USED THREE TIMES A DAY TO BOTH EYES,20 ML)
  34. PILOCARPINE [Concomitant]
     Active Substance: PILOCARPINE
     Dosage: 1 DOSAGE FORM, TID (PILOCARPINE HYDROCHLORIDE 2% EYE DROPS, ONE DROP TO BE USED THREE TIMES A DAY TO BOTH EYES,20 ML)
     Route: 047
  35. PILOCARPINE [Concomitant]
     Active Substance: PILOCARPINE
     Dosage: 1 DOSAGE FORM, TID (PILOCARPINE HYDROCHLORIDE 2% EYE DROPS, ONE DROP TO BE USED THREE TIMES A DAY TO BOTH EYES,20 ML)
     Route: 047
  36. PILOCARPINE [Concomitant]
     Active Substance: PILOCARPINE
     Dosage: 1 DOSAGE FORM, TID (PILOCARPINE HYDROCHLORIDE 2% EYE DROPS, ONE DROP TO BE USED THREE TIMES A DAY TO BOTH EYES,20 ML)
  37. CALCIUM CARBONATE\CHOLECALCIFEROL [Concomitant]
     Active Substance: CALCIUM CARBONATE\CHOLECALCIFEROL
     Dosage: 1 DOSAGE FORM, BID (ADCAL-D3 CHEWABLE TABLETS TUTTI FRUTTI (KYOWA KIRIN INTERNATIONAL UK NEWCO LTD), 1 TWICE A DAY,56 TABLET - CALCID)
  38. CALCIUM CARBONATE\CHOLECALCIFEROL [Concomitant]
     Active Substance: CALCIUM CARBONATE\CHOLECALCIFEROL
     Dosage: 1 DOSAGE FORM, BID (ADCAL-D3 CHEWABLE TABLETS TUTTI FRUTTI (KYOWA KIRIN INTERNATIONAL UK NEWCO LTD), 1 TWICE A DAY,56 TABLET - CALCID)
     Route: 065
  39. CALCIUM CARBONATE\CHOLECALCIFEROL [Concomitant]
     Active Substance: CALCIUM CARBONATE\CHOLECALCIFEROL
     Dosage: 1 DOSAGE FORM, BID (ADCAL-D3 CHEWABLE TABLETS TUTTI FRUTTI (KYOWA KIRIN INTERNATIONAL UK NEWCO LTD), 1 TWICE A DAY,56 TABLET - CALCID)
     Route: 065
  40. CALCIUM CARBONATE\CHOLECALCIFEROL [Concomitant]
     Active Substance: CALCIUM CARBONATE\CHOLECALCIFEROL
     Dosage: 1 DOSAGE FORM, BID (ADCAL-D3 CHEWABLE TABLETS TUTTI FRUTTI (KYOWA KIRIN INTERNATIONAL UK NEWCO LTD), 1 TWICE A DAY,56 TABLET - CALCID)
  41. Easyhaler [Concomitant]
     Dosage: UNK (EASYHALER SALBUTAMOL SULFATE 100MICROGRAMS/DOSE DRY POWDER INHALER 1-2 PUFFS AS REQUIRED,1 X 200 DOSE)
  42. Easyhaler [Concomitant]
     Dosage: UNK (EASYHALER SALBUTAMOL SULFATE 100MICROGRAMS/DOSE DRY POWDER INHALER 1-2 PUFFS AS REQUIRED,1 X 200 DOSE)
     Route: 055
  43. Easyhaler [Concomitant]
     Dosage: UNK (EASYHALER SALBUTAMOL SULFATE 100MICROGRAMS/DOSE DRY POWDER INHALER 1-2 PUFFS AS REQUIRED,1 X 200 DOSE)
     Route: 055
  44. Easyhaler [Concomitant]
     Dosage: UNK (EASYHALER SALBUTAMOL SULFATE 100MICROGRAMS/DOSE DRY POWDER INHALER 1-2 PUFFS AS REQUIRED,1 X 200 DOSE)
  45. AMLODIPINE [Concomitant]
     Active Substance: AMLODIPINE BESYLATE
     Dosage: 2.5 MILLIGRAM, QD (AMLODIPINE 2.5MG TABLETS, ONCE A DAY,28 TABLET)
  46. AMLODIPINE [Concomitant]
     Active Substance: AMLODIPINE BESYLATE
     Dosage: 2.5 MILLIGRAM, QD (AMLODIPINE 2.5MG TABLETS, ONCE A DAY,28 TABLET)
     Route: 065
  47. AMLODIPINE [Concomitant]
     Active Substance: AMLODIPINE BESYLATE
     Dosage: 2.5 MILLIGRAM, QD (AMLODIPINE 2.5MG TABLETS, ONCE A DAY,28 TABLET)
     Route: 065
  48. AMLODIPINE [Concomitant]
     Active Substance: AMLODIPINE BESYLATE
     Dosage: 2.5 MILLIGRAM, QD (AMLODIPINE 2.5MG TABLETS, ONCE A DAY,28 TABLET)
  49. COCODAMOL [Concomitant]
     Active Substance: ACETAMINOPHEN\CODEINE PHOSPHATE
     Dosage: UNK (CO-CODAMOL 15MG/500MG TABLETS, 1-2 TABLETS UP TO FOUR TIMES DAILY,100 TABLET)
  50. COCODAMOL [Concomitant]
     Active Substance: ACETAMINOPHEN\CODEINE PHOSPHATE
     Dosage: UNK (CO-CODAMOL 15MG/500MG TABLETS, 1-2 TABLETS UP TO FOUR TIMES DAILY,100 TABLET)
     Route: 065
  51. COCODAMOL [Concomitant]
     Active Substance: ACETAMINOPHEN\CODEINE PHOSPHATE
     Dosage: UNK (CO-CODAMOL 15MG/500MG TABLETS, 1-2 TABLETS UP TO FOUR TIMES DAILY,100 TABLET)
     Route: 065
  52. COCODAMOL [Concomitant]
     Active Substance: ACETAMINOPHEN\CODEINE PHOSPHATE
     Dosage: UNK (CO-CODAMOL 15MG/500MG TABLETS, 1-2 TABLETS UP TO FOUR TIMES DAILY,100 TABLET)

REACTIONS (2)
  - Visual impairment [Unknown]
  - Dyschromatopsia [Unknown]
